FAERS Safety Report 8465164-1 (Version None)
Quarter: 2012Q2

REPORT INFORMATION
  Report Type: 
  Country: None (occurrence: None)
  Receive Date: 20120626
  Receipt Date: 20120618
  Transmission Date: 20120825
  Serious: Yes (Hospitalization)
  Sender: FDA-Public Use
  Company Number: PHHY2012FR052933

PATIENT
  Sex: Male

DRUGS (4)
  1. VOLTAREN [Suspect]
     Indication: TORTICOLLIS
     Route: 061
     Dates: start: 20120415
  2. VOLTAREN [Suspect]
     Indication: BACK PAIN
     Route: 048
     Dates: start: 20120418
  3. IBUPROFEN [Suspect]
     Indication: BACK PAIN
     Dosage: 1 DF, QD
     Dates: start: 20120416
  4. IBUPROFEN [Suspect]
     Dosage: 1 DF, QD
     Dates: start: 20120417

REACTIONS (6)
  - INFLAMMATION [None]
  - TUBULOINTERSTITIAL NEPHRITIS [None]
  - BACK PAIN [None]
  - RENAL FAILURE ACUTE [None]
  - HYPONATRAEMIA [None]
  - NEPHRITIS ALLERGIC [None]
